FAERS Safety Report 5519499-2 (Version None)
Quarter: 2007Q4

REPORT INFORMATION
  Report Type: 
  Country: None (occurrence: None)
  Receive Date: 20071116
  Receipt Date: 20071106
  Transmission Date: 20080405
  Serious: Yes (Other)
  Sender: FDA-Public Use
  Company Number: US-ELI_LILLY_AND_COMPANY-US200711001921

PATIENT
  Sex: Male

DRUGS (5)
  1. BYETTA [Suspect]
     Dosage: 5 UG, 2/D
     Route: 058
     Dates: start: 20060101, end: 20060101
  2. BYETTA [Suspect]
     Dosage: 10 UG, 2/D
     Route: 058
     Dates: start: 20060101
  3. METFORMIN HCL [Concomitant]
     Indication: DIABETES MELLITUS
     Dosage: 1000 MG, 2/D
  4. GLIMEPIRIDE [Concomitant]
     Indication: DIABETES MELLITUS
     Dosage: 4 MG, UNKNOWN
  5. GLUCOTROL [Concomitant]
     Indication: DIABETES MELLITUS
     Dosage: UNK, UNKNOWN

REACTIONS (4)
  - ARTHROPATHY [None]
  - BLOOD GLUCOSE INCREASED [None]
  - MUSCULOSKELETAL PAIN [None]
  - NERVE INJURY [None]
